FAERS Safety Report 7381389-0 (Version None)
Quarter: 2011Q1

REPORT INFORMATION
  Report Type: 
  Country: None (occurrence: None)
  Receive Date: 20110322
  Receipt Date: 20110304
  Transmission Date: 20110831
  Serious: Yes (Other)
  Sender: FDA-Public Use
  Company Number: 2011P1004659

PATIENT
  Age: 73 Year
  Sex: Female
  Weight: 63.5036 kg

DRUGS (1)
  1. DEXEDRINE [Suspect]
     Indication: NARCOLEPSY
     Dosage: 4 CAPSULES;TID;PO
     Route: 048
     Dates: start: 19710101

REACTIONS (5)
  - CONVULSION [None]
  - RHINORRHOEA [None]
  - PYREXIA [None]
  - HEADACHE [None]
  - OROPHARYNGEAL PAIN [None]
